FAERS Safety Report 6055054-6 (Version None)
Quarter: 2009Q1

REPORT INFORMATION
  Report Type: 
  Country: None (occurrence: None)
  Receive Date: 20090122
  Receipt Date: 20080424
  Transmission Date: 20090719
  Serious: Yes (Other)
  Sender: FDA-Public Use
  Company Number: 2009PL000012

PATIENT
  Age: 31 Year
  Sex: Female

DRUGS (6)
  1. AZATHIOPRINE [Suspect]
     Indication: RENAL TRANSPLANT
     Dosage: 2 MG/KG;QD
  2. CORTICOSTEROIDS [Concomitant]
  3. CYCLOSPORINE [Concomitant]
  4. MYCOPHENOLATE MOFETIL [Concomitant]
  5. ANTIFUNGAL TREATMENT [Concomitant]
  6. RETINOIDS (NOT SPECIFIED) [Concomitant]

REACTIONS (9)
  - DIABETES MELLITUS [None]
  - DIARRHOEA [None]
  - DISEASE RECURRENCE [None]
  - DRUG TOXICITY [None]
  - ECZEMA [None]
  - GASTROINTESTINAL DISORDER [None]
  - NERVOUS SYSTEM DISORDER [None]
  - PUSTULAR PSORIASIS [None]
  - RASH PUSTULAR [None]
